FAERS Safety Report 4768936-X (Version None)
Quarter: 2005Q3

REPORT INFORMATION
  Report Type: 
  Country: None (occurrence: None)
  Receive Date: 20050914
  Receipt Date: 20050902
  Transmission Date: 20060218
  Serious: Yes (Hospitalization)
  Sender: FDA-Public Use
  Company Number: HQWYE052822AUG05

PATIENT
  Age: 69 Year
  Sex: Female

DRUGS (3)
  1. CORDARONE [Suspect]
     Dosage: 1000 MG 1X PER 1 DAY, ORAL
     Route: 048
     Dates: end: 20050614
  2. OROKEN (CEFIXIME, UNSPEC) [Suspect]
     Dosage: 400 MG 1X PER 1 DAY, ORAL
     Route: 048
     Dates: start: 20050611, end: 20050614
  3. PREVISCAN (FLUINDIONE) [Suspect]
     Dosage: 10 MG 1X  PER 1 DAY, ORAL
     Route: 048
     Dates: end: 20050614

REACTIONS (3)
  - NEPHRITIS INTERSTITIAL [None]
  - RENAL FAILURE ACUTE [None]
  - TOXIC SKIN ERUPTION [None]
